FAERS Safety Report 4453948-6 (Version None)
Quarter: 2004Q3

REPORT INFORMATION
  Report Type: 
  Country: None (occurrence: None)
  Receive Date: 20040826
  Receipt Date: 20040609
  Transmission Date: 20050211
  Serious: No
  Sender: FDA-Public Use
  Company Number: WAES 0403USA01921

PATIENT
  Age: 72 Year
  Sex: Female
  Weight: 62.1428 kg

DRUGS (8)
  1. ZETIA [Suspect]
     Indication: BLOOD CHOLESTEROL INCREASED
     Dosage: 10 MG/DAILY/PO
     Route: 048
     Dates: start: 20040301, end: 20040308
  2. ZETIA [Suspect]
     Indication: HYPERCHOLESTEROLAEMIA
     Dosage: 10 MG/DAILY/PO
     Route: 048
     Dates: start: 20040301, end: 20040308
  3. ZETIA [Suspect]
     Indication: BLOOD CHOLESTEROL INCREASED
     Dosage: 10 MG/DAILY/PO
     Route: 048
     Dates: start: 20040310, end: 20040312
  4. ZETIA [Suspect]
     Indication: HYPERCHOLESTEROLAEMIA
     Dosage: 10 MG/DAILY/PO
     Route: 048
     Dates: start: 20040310, end: 20040312
  5. CALCIUM (UNSPECIFIED) [Concomitant]
  6. VITAMIN B COMPLEX CAP [Concomitant]
  7. VITAMIN E [Concomitant]
  8. VITAMINS (UNSPECIFIED) [Concomitant]

REACTIONS (1)
  - CHEST WALL PAIN [None]
